FAERS Safety Report 23777189 (Version 1)
Quarter: 2024Q2

REPORT INFORMATION
  Report Type: Spontaneous
  Country: CA (occurrence: CA)
  Receive Date: 20240424
  Receipt Date: 20240424
  Transmission Date: 20240716
  Serious: Yes (Other)
  Sender: FDA-Public Use
  Company Number: CA-BAXTER-2024BAX017152

PATIENT
  Age: 69 Year
  Sex: Male

DRUGS (10)
  1. ACETAMINOPHEN [Suspect]
     Active Substance: ACETAMINOPHEN
     Indication: Pain
     Dosage: (DOSAGE FORM: NOT SPECIFIED) 975.0 MILLIGRAM 4 EVERY 1 DAYS
     Route: 065
  2. ACETAMINOPHEN [Suspect]
     Active Substance: ACETAMINOPHEN
     Dosage: (DOSAGE FORM: NOT SPECIFIED) 975.0 MILLIGRAM 1 EVERY 6 HOURS
     Route: 065
  3. DILAUDID [Suspect]
     Active Substance: HYDROMORPHONE HYDROCHLORIDE
     Indication: Pain
     Dosage: (DOSAGE FORM: NOT SPECIFIED) AT AN UNSPECIFIED DOSE AND FREQUENCY
     Route: 065
  4. FENTANYL [Suspect]
     Active Substance: FENTANYL\FENTANYL CITRATE
     Indication: Pain
     Dosage: 25.0 MILLIGRAM AT AN UNSPECIFIED FREQUENCY
     Route: 065
  5. FENTANYL [Suspect]
     Active Substance: FENTANYL\FENTANYL CITRATE
     Indication: Pain
     Dosage: (DOSAGE FORM: NOT SPECIFIED) 150.0 MILLIGRAM AT AN UNSPECIFIED FREQUENCY
     Route: 065
  6. FENTANYL [Suspect]
     Active Substance: FENTANYL\FENTANYL CITRATE
     Dosage: (DOSAGE FORM: NOT SPECIFIED) 25.0 MILLIGRAM AT AN UNSPECIFIED FREQUENCY
     Route: 065
  7. GABAPENTIN [Suspect]
     Active Substance: GABAPENTIN
     Indication: Pain
     Dosage: (DOSAGE FORM: NOT SPECIFIED) 900.0 MILLIGRAM 4 EVERY 1 DAYS
     Route: 065
  8. GABAPENTIN [Suspect]
     Active Substance: GABAPENTIN
     Dosage: (DOSAGE FORM: NOT SPECIFIED) 900.0 MILLIGRAM 1 EVERY 6 HOURS
     Route: 065
  9. METHADONE [Suspect]
     Active Substance: METHADONE HYDROCHLORIDE
     Indication: Pain
     Dosage: (DOSAGE FORM: NOT SPECIFIED) 4.0 MILLIGRAM AT AN UNSPECIFIED FREQUENCY
     Route: 048
  10. METHADONE [Suspect]
     Active Substance: METHADONE HYDROCHLORIDE
     Dosage: 4.0 MILLIGRAM 1 EVERY 4 HOURS
     Route: 048

REACTIONS (4)
  - Adverse drug reaction [Unknown]
  - Confusional state [Unknown]
  - Mobility decreased [Unknown]
  - Somnolence [Unknown]
